FAERS Safety Report 9438672 (Version 2)
Quarter: 2013Q3

REPORT INFORMATION
  Report Type: Report from Study
  Country: PE (occurrence: PE)
  Receive Date: 20130802
  Receipt Date: 20130905
  Transmission Date: 20140515
  Serious: Yes (Other)
  Sender: FDA-Public Use
  Company Number: PE-GILEAD-2013-0080355

PATIENT
  Age: 27 Year
  Sex: Male

DRUGS (1)
  1. EMTRICITABINE/TENOFOVIR DISOPROXIL FUMARATE [Suspect]
     Indication: PROPHYLAXIS AGAINST HIV INFECTION
     Dosage: UNK UNK, QD
     Dates: start: 20120208, end: 20120504

REACTIONS (3)
  - Viral load increased [Unknown]
  - Drug ineffective [Unknown]
  - Seroconversion test [Unknown]
